FAERS Safety Report 18740334 (Version 1)
Quarter: 2021Q1

REPORT INFORMATION
  Report Type: Spontaneous
  Country: US (occurrence: US)
  Receive Date: 20210114
  Receipt Date: 20210114
  Transmission Date: 20210419
  Serious: Yes (Death, Hospitalization)
  Sender: FDA-Public Use
  Company Number: US-PFIZER INC-2021014308

PATIENT
  Age: 34 Year
  Sex: Male

DRUGS (4)
  1. ALPRAZOLAM. [Suspect]
     Active Substance: ALPRAZOLAM
     Dosage: UNK (INHALATION/NASAL)
     Route: 055
  2. BUPROPION. [Suspect]
     Active Substance: BUPROPION
     Dosage: UNK (INHALATION/NASAL)
     Route: 055
  3. BUPROPION. [Suspect]
     Active Substance: BUPROPION
     Dosage: UNK
     Route: 065
  4. ALPRAZOLAM. [Suspect]
     Active Substance: ALPRAZOLAM
     Dosage: UNK
     Route: 065

REACTIONS (2)
  - Cardiac arrest [Fatal]
  - Respiratory arrest [Fatal]

NARRATIVE: CASE EVENT DATE: 2019
